FAERS Safety Report 6722899-6 (Version None)
Quarter: 2010Q2

REPORT INFORMATION
  Report Type: 
  Country: None (occurrence: None)
  Receive Date: 20100511
  Receipt Date: 20100423
  Transmission Date: 20101027
  Serious: Yes (Life-Threatening, Hospitalization)
  Sender: FDA-Public Use
  Company Number: 011439

PATIENT
  Sex: Female

DRUGS (13)
  1. ISOSORBIDE MONONITRATE [Suspect]
     Indication: HYPERTENSION
     Dosage: (25 MG QD ORAL)
     Route: 048
  2. BLINDED VACCINE INJECTION ( INVESTIGATIONAL DRUG) [Suspect]
     Dosage: (SECOND DOSE INTRAMUSCLUAR)
     Route: 030
     Dates: start: 20090930, end: 20090930
  3. FRUSEMIDE /00032601/ (FRUSEMIDE) [Suspect]
     Indication: HYPERTENSION
     Dosage: (40 MG QD ORAL), (20 MG QD ORAL)
     Route: 048
  4. ENALAPRIL MALEATE [Suspect]
     Indication: HYPERTENSION
     Dosage: (10 MG QD ORAL)
     Route: 048
  5. AMLODIPINE [Suspect]
     Indication: HYPERTENSION
     Dosage: (5 MG QD ORAL)
     Route: 048
     Dates: end: 20100121
  6. METOPROLOL (METOPROLOL) [Suspect]
     Indication: HYPERTENSION
     Dosage: (200 MG QD ORAL)
     Route: 048
  7. PRAVASTATIN [Concomitant]
  8. METFORMIN HCL [Concomitant]
  9. ACETYLSALICYLIC ACID [Concomitant]
  10. DIPYRIDAMOL [Concomitant]
  11. SINTROM [Concomitant]
  12. INSULIN GLARGINE [Concomitant]
  13. INSULIN ASPART [Concomitant]

REACTIONS (6)
  - ALTERED STATE OF CONSCIOUSNESS [None]
  - CEREBROVASCULAR ACCIDENT [None]
  - EYE PAIN [None]
  - HEADACHE [None]
  - TRANSIENT ISCHAEMIC ATTACK [None]
  - TREMOR [None]
